FAERS Safety Report 5482089-4 (Version None)
Quarter: 2007Q4

REPORT INFORMATION
  Report Type: 
  Country: None (occurrence: None)
  Receive Date: 20071011
  Receipt Date: 20071005
  Transmission Date: 20080405
  Serious: Yes (Death, Other)
  Sender: FDA-Public Use
  Company Number: PHBS2007JP16108

PATIENT
  Age: 21 Year
  Sex: Male

DRUGS (6)
  1. NEORAL [Suspect]
     Indication: BONE MARROW TRANSPLANT
     Dosage: 200 MG/DAY
     Route: 048
     Dates: end: 20070121
  2. NEORAL [Suspect]
     Dosage: 100 MG/DAY
     Route: 048
     Dates: start: 20070122, end: 20070123
  3. NEORAL [Suspect]
     Dosage: 50 MG/DAY
     Route: 048
     Dates: start: 20070124
  4. PREDNISOLONE [Concomitant]
     Route: 065
  5. DRUG THERAPY NOS [Concomitant]
  6. ANTITHYMOCYTE IMMUNOGLOBULIN [Concomitant]

REACTIONS (9)
  - BIOPSY KIDNEY ABNORMAL [None]
  - BLOOD CREATININE INCREASED [None]
  - BLOOD LACTATE DEHYDROGENASE INCREASED [None]
  - IMMUNOSUPPRESSANT DRUG LEVEL INCREASED [None]
  - INFECTION [None]
  - OCCULT BLOOD POSITIVE [None]
  - PROTEINURIA [None]
  - RENAL FAILURE ACUTE [None]
  - THROMBOTIC MICROANGIOPATHY [None]
